FAERS Safety Report 12213846 (Version 1)
Quarter: 2016Q1

REPORT INFORMATION
  Report Type: Spontaneous
  Country: US (occurrence: US)
  Receive Date: 20160328
  Receipt Date: 20160328
  Transmission Date: 20160526
  Serious: No
  Sender: FDA-Public Use
  Company Number: US-GLAXOSMITHKLINE-US2016038959

PATIENT
  Sex: Female

DRUGS (6)
  1. HEMP [Concomitant]
     Active Substance: HEMP
  2. FOLIC ACID. [Concomitant]
     Active Substance: FOLIC ACID
  3. LAMICTAL [Suspect]
     Active Substance: LAMOTRIGINE
     Indication: SEIZURE
     Dosage: 300 MG, QD
     Route: 048
     Dates: start: 200711
  4. LYSINE [Concomitant]
     Active Substance: LYSINE
  5. LAMICTAL [Suspect]
     Active Substance: LAMOTRIGINE
     Dosage: 100 MG, Z
     Dates: start: 201601
  6. FLAXSEED [Concomitant]
     Active Substance: FLAX SEED

REACTIONS (2)
  - Drug effect delayed [Recovering/Resolving]
  - Extra dose administered [Unknown]
